FAERS Safety Report 18458609 (Version 4)
Quarter: 2021Q1

REPORT INFORMATION
  Report Type: Spontaneous
  Country: US (occurrence: US)
  Receive Date: 20201103
  Receipt Date: 20210202
  Transmission Date: 20210419
  Serious: Yes (Death)
  Sender: FDA-Public Use
  Company Number: US-PFIZER INC-2020112429

PATIENT
  Age: 84 Year
  Sex: Female
  Weight: 53.9 kg

DRUGS (3)
  1. RETACRIT [Suspect]
     Active Substance: EPOETIN ALFA-EPBX
     Indication: ANAEMIA OF CHRONIC DISEASE
     Dosage: 40000 IU, WEEKLY (40000 UNITS TOTAL)
     Route: 058
  2. RETACRIT [Suspect]
     Active Substance: EPOETIN ALFA-EPBX
     Dosage: 10000 IU
  3. RETACRIT [Suspect]
     Active Substance: EPOETIN ALFA-EPBX
     Indication: CHRONIC KIDNEY DISEASE
     Dosage: 10000 IU  [INJECT 1 ML (10,000) UNDER THE SKIN ONCE]
     Route: 058

REACTIONS (3)
  - Cerebral infarction [Fatal]
  - Off label use [Recovered/Resolved]
  - Product use issue [Recovered/Resolved]
